FAERS Safety Report 7086739-0 (Version None)
Quarter: 2010Q4

REPORT INFORMATION
  Report Type: 
  Country: None (occurrence: None)
  Receive Date: 20101105
  Receipt Date: 20101027
  Transmission Date: 20110411
  Serious: Yes (Hospitalization, Other)
  Sender: FDA-Public Use
  Company Number: US-ELI_LILLY_AND_COMPANY-US201001002577

PATIENT
  Sex: Female
  Weight: 62.585 kg

DRUGS (11)
  1. BYETTA [Suspect]
     Indication: DIABETES MELLITUS
     Dosage: 10 UG, 2/D
     Route: 058
     Dates: start: 20061013, end: 20081212
  2. GLUCOPHAGE [Concomitant]
     Indication: DIABETES MELLITUS
     Dosage: 50 MG, 2/D
     Route: 048
  3. LOVASTATIN [Concomitant]
     Indication: BLOOD CHOLESTEROL
  4. HYDROCHLOROTHIAZIDE [Concomitant]
     Indication: HYPERTENSION
  5. TYLENOL                                 /SCH/ [Concomitant]
     Indication: HEADACHE
  6. ISOSORBIDE DINITRATE [Concomitant]
  7. AVANDIA [Concomitant]
     Dosage: 8 MG, DAILY (1/D)
     Route: 048
  8. PRAVASTATIN [Concomitant]
  9. JANUMET [Concomitant]
  10. TRICOR [Concomitant]
  11. CALCIUM [Concomitant]
     Indication: OSTEOPENIA

REACTIONS (1)
  - PANCREATITIS ACUTE [None]
